FAERS Safety Report 7800668-3 (Version None)
Quarter: 2011Q4

REPORT INFORMATION
  Report Type: 
  Country: None (occurrence: None)
  Receive Date: 20111006
  Receipt Date: 20110726
  Transmission Date: 20120403
  Serious: No
  Sender: FDA-Public Use
  Company Number: US-BAYER-2011-066941

PATIENT
  Age: 47 Year
  Sex: Male
  Weight: 108.84 kg

DRUGS (2)
  1. ALEVE (CAPLET) [Suspect]
     Dosage: 4 DF, ONCE
  2. MOTRIN [Concomitant]
     Indication: BACK PAIN

REACTIONS (1)
  - NO ADVERSE EVENT [None]
